FAERS Safety Report 10199543 (Version 1)
Quarter: 2014Q2

REPORT INFORMATION
  Report Type: Spontaneous
  Country: SE (occurrence: SE)
  Receive Date: 20140527
  Receipt Date: 20140527
  Transmission Date: 20141212
  Serious: Yes (Other)
  Sender: FDA-Public Use
  Company Number: SE-WATSON-2013-25439

PATIENT
  Age: 35 Year
  Sex: Female

DRUGS (1)
  1. STESOLID [Suspect]
     Indication: PRODUCT USED FOR UNKNOWN INDICATION
     Dosage: 5-10 MG, DAILY
     Route: 065
     Dates: start: 201012, end: 201204

REACTIONS (7)
  - Suicidal ideation [Unknown]
  - Psychotic disorder [Unknown]
  - Personality change [Unknown]
  - Amnesia [Unknown]
  - Confusional state [Unknown]
  - Anxiety [Unknown]
  - Aggression [Unknown]
